FAERS Safety Report 8463935 (Version 2)
Quarter: 2013Q2

REPORT INFORMATION
  Report Type: Report from Study
  Country: BR (occurrence: BR)
  Receive Date: 20120316
  Receipt Date: 20130513
  Transmission Date: 20140414
  Serious: Yes (Other)
  Sender: FDA-Public Use
  Company Number: PHHY2012BR022614

PATIENT
  Sex: Female

DRUGS (3)
  1. DIOVAN HCT [Suspect]
     Indication: HYPERTENSION
     Dosage: 1 DF, (160/25 MG) DAILY
     Route: 048
  2. ATENOLOL [Concomitant]
     Indication: HEART RATE IRREGULAR
     Dosage: 1 DF, (50 MG) DAILY
     Route: 048
     Dates: start: 2010
  3. ATENOLOL [Concomitant]
     Indication: ANGINA PECTORIS

REACTIONS (7)
  - Breast cancer [Recovered/Resolved]
  - Renal cyst [Not Recovered/Not Resolved]
  - Osteoarthritis [Not Recovered/Not Resolved]
  - Osteoporosis [Unknown]
  - Angina pectoris [Recovered/Resolved]
  - Metastatic lymphoma [Unknown]
  - Lymphadenopathy [Recovered/Resolved]
